FAERS Safety Report 5530421-5 (Version None)
Quarter: 2007Q4

REPORT INFORMATION
  Report Type: 
  Country: None (occurrence: None)
  Receive Date: 20071127
  Receipt Date: 20071127
  Transmission Date: 20080405
  Serious: No
  Sender: FDA-Public Use
  Company Number: None

PATIENT
  Age: 42 Year
  Sex: Male

DRUGS (1)
  1. PENICILLIN [Suspect]
     Indication: ORAL INFECTION
     Dosage: 500MG QID PO
     Route: 048
     Dates: start: 20071018, end: 20071023

REACTIONS (2)
  - DRUG HYPERSENSITIVITY [None]
  - RASH [None]
